FAERS Safety Report 4334860-X (Version None)
Quarter: 2004Q2

REPORT INFORMATION
  Report Type: 
  Country: None (occurrence: None)
  Receive Date: 20040405
  Receipt Date: 20040324
  Transmission Date: 20050107
  Serious: Yes (Death, Other)
  Sender: FDA-Public Use
  Company Number: JP-JNJFOC-20040304102

PATIENT
  Age: 83 Year
  Sex: Female
  Weight: 48.9 kg

DRUGS (20)
  1. REMICADE [Suspect]
     Indication: RHEUMATOID ARTHRITIS
     Dosage: 3 MG/KG, 1 IN 1 AS NECESSARY, INTRAVENOUS DRIP
     Route: 041
     Dates: start: 20040122, end: 20040122
  2. RHEUMATREX [Suspect]
     Dosage: 6 MG, IN 1 WEEK, ORAL
     Route: 048
     Dates: start: 20020201, end: 20040206
  3. GASTER (FAMOTIDINE) INJECTION [Concomitant]
  4. FOLIAMIN (FOLIC ACID) TABLETS [Concomitant]
  5. PREDISONE (PROCAINAMIDE HYDROCHLORIDE) TABLETS [Concomitant]
  6. BETAMETHASONE [Concomitant]
  7. SOLU-MEDROL [Concomitant]
  8. LOXONIN (LOXOPROFEN SODIUM) TABLETS [Concomitant]
  9. VOLTAREN [Concomitant]
  10. BENET (ALL OTHER THERAPEUTIC PRODUCTS) TABLETS [Concomitant]
  11. DORAL [Concomitant]
  12. AMLODIN (AMLODIPINE BESILATE) TABLETS [Concomitant]
  13. MICARDIS (TELMISARTAN) CAPSULES [Concomitant]
  14. PURSENNID (SENNA LEAF) TABLETS [Concomitant]
  15. STREPTOMYCIN (STREPTOMYCIN) POWDER [Concomitant]
  16. MAGNESIUM (MAGNESIUM) POWDER [Concomitant]
  17. ISONIAZID (ISONIAZID) POWDER [Concomitant]
  18. PALUX (ALPROSTADIL) INJECTION [Concomitant]
  19. METHYCOBAL (MECOBALAMIN) INJECTION [Concomitant]
  20. HALCION [Concomitant]

REACTIONS (8)
  - BLOOD IMMUNOGLOBULIN G DECREASED [None]
  - BLOOD UREA INCREASED [None]
  - DISSEMINATED INTRAVASCULAR COAGULATION [None]
  - DRUG INTERACTION [None]
  - DRUG LEVEL INCREASED [None]
  - PANCYTOPENIA [None]
  - RENAL DISORDER [None]
  - RESPIRATORY FAILURE [None]
